FAERS Safety Report 9028356 (Version 1)
Quarter: 2013Q1

REPORT INFORMATION
  Report Type: Spontaneous
  Country: US (occurrence: US)
  Receive Date: 20130124
  Receipt Date: 20130124
  Transmission Date: 20140127
  Serious: No
  Sender: FDA-Public Use
  Company Number: US-BAUSCH-BL-2012-000830

PATIENT
  Age: 56 Year
  Sex: Male
  Weight: 108.96 kg

DRUGS (5)
  1. ALAWAY [Suspect]
     Indication: OCULAR HYPERAEMIA
     Dosage: 1 DROP IN EACH EYES; THREE TIMES DAILY
     Route: 047
     Dates: start: 20120730, end: 20120806
  2. ALAWAY [Suspect]
     Indication: OFF LABEL USE
  3. CLOPIDOGREL BISULFATE [Concomitant]
  4. ATENOLOL [Concomitant]
  5. SIMVASTATIN [Concomitant]

REACTIONS (1)
  - Eye irritation [Recovered/Resolved]
